FAERS Safety Report 19939156 (Version 2)
Quarter: 2022Q1

REPORT INFORMATION
  Report Type: Report from Study
  Country: SG (occurrence: SG)
  Receive Date: 20211011
  Receipt Date: 20220105
  Transmission Date: 20220423
  Serious: No
  Sender: FDA-Public Use
  Company Number: SG-KARYOPHARM-2021KPT001243

PATIENT
  Age: 67 Year
  Sex: Male

DRUGS (4)
  1. SELINEXOR [Suspect]
     Active Substance: SELINEXOR
     Indication: Plasma cell myeloma
     Dosage: 100 MG, 2X/WEEK
     Route: 048
     Dates: start: 20210323
  2. SELINEXOR [Suspect]
     Active Substance: SELINEXOR
     Dosage: 60 MG, 2X/WEEK
     Route: 048
     Dates: end: 20211030
  3. DEXAMETHASONE [Concomitant]
     Active Substance: DEXAMETHASONE
     Indication: Plasma cell myeloma
     Dosage: UNK
  4. BORTEZOMIB [Concomitant]
     Active Substance: BORTEZOMIB
     Indication: Plasma cell myeloma

REACTIONS (2)
  - Nausea [Not Recovered/Not Resolved]
  - Diarrhoea [Not Recovered/Not Resolved]

NARRATIVE: CASE EVENT DATE: 20210525
